FAERS Safety Report 15202837 (Version 3)
Quarter: 2019Q1

REPORT INFORMATION
  Report Type: Spontaneous
  Country: US (occurrence: US)
  Receive Date: 20180726
  Receipt Date: 20190118
  Transmission Date: 20190417
  Serious: Yes (Hospitalization)
  Sender: FDA-Public Use
  Company Number: US-OTSUKA-2018_017035

PATIENT
  Sex: Female

DRUGS (10)
  1. HYDROXYZINE [Concomitant]
     Active Substance: HYDROXYZINE HYDROCHLORIDE
     Indication: ANXIETY
     Dosage: 50 MG, TID (1/2-1)
     Route: 065
  2. HALDOL [Concomitant]
     Active Substance: HALOPERIDOL
     Dosage: 5 MG, QD  (AT NIGHT)
     Route: 065
  3. HYDROXYZINE [Concomitant]
     Active Substance: HYDROXYZINE HYDROCHLORIDE
     Dosage: 25 MG, TID
     Route: 065
  4. SERAX [Concomitant]
     Active Substance: OXAZEPAM
     Dosage: 15 MG, TID
     Route: 065
  5. HALDOL [Concomitant]
     Active Substance: HALOPERIDOL
     Indication: PRODUCT USED FOR UNKNOWN INDICATION
     Dosage: 1 MG, QD (ONE TO TWO AT NIGHT)
     Route: 065
  6. SERAX [Concomitant]
     Active Substance: OXAZEPAM
     Indication: PRODUCT USED FOR UNKNOWN INDICATION
     Dosage: 30 MG, BID
     Route: 065
  7. ABILIFY [Suspect]
     Active Substance: ARIPIPRAZOLE
     Indication: MAJOR DEPRESSION
     Dosage: 5-10 MG DAILY
     Route: 065
     Dates: start: 200302, end: 200905
  8. DEPAKOTE [Concomitant]
     Active Substance: DIVALPROEX SODIUM
     Indication: PRODUCT USED FOR UNKNOWN INDICATION
     Dosage: 500 MG, QD (TWO AT NIGHT)
     Route: 065
  9. ABILIFY [Suspect]
     Active Substance: ARIPIPRAZOLE
     Indication: ANXIETY
     Dosage: UNK
     Route: 065
  10. KLONOPIN [Concomitant]
     Active Substance: CLONAZEPAM
     Indication: PRODUCT USED FOR UNKNOWN INDICATION
     Dosage: 1 MG, TID
     Route: 065

REACTIONS (23)
  - Compulsive hoarding [Recovered/Resolved]
  - Shoplifting [Recovered/Resolved]
  - Obsessive-compulsive disorder [Recovered/Resolved]
  - Dermatillomania [Recovered/Resolved]
  - Eating disorder [Recovered/Resolved]
  - Anxiety [Unknown]
  - Loss of employment [Unknown]
  - Hypersexuality [Unknown]
  - Economic problem [Unknown]
  - Mental disorder [Unknown]
  - Compulsive shopping [Recovered/Resolved]
  - Product use in unapproved indication [Unknown]
  - Trichotillomania [Recovered/Resolved]
  - Condition aggravated [Recovered/Resolved]
  - Unintended pregnancy [Unknown]
  - Compulsive sexual behaviour [Recovered/Resolved]
  - Personal relationship issue [Unknown]
  - Sexually transmitted disease [Unknown]
  - Theft [Recovered/Resolved]
  - Sexual dysfunction [Recovered/Resolved]
  - Gambling disorder [Recovered/Resolved]
  - Divorced [Unknown]
  - Homeless [Unknown]

NARRATIVE: CASE EVENT DATE: 2009
